FAERS Safety Report 7653399-7 (Version None)
Quarter: 2011Q3

REPORT INFORMATION
  Report Type: 
  Country: None (occurrence: None)
  Receive Date: 20110803
  Receipt Date: 20110729
  Transmission Date: 20111222
  Serious: No
  Sender: FDA-Public Use
  Company Number: US-PFIZER INC-2011174817

PATIENT
  Sex: Male

DRUGS (1)
  1. CADUET [Suspect]
     Indication: CARDIAC OPERATION
     Dosage: [AMLODIPINE 5 MG/ ATORVASTATIN 80 MG]

REACTIONS (1)
  - BLOOD ALKALINE PHOSPHATASE INCREASED [None]
